FAERS Safety Report 8895850 (Version 1)
Quarter: 2012Q4

REPORT INFORMATION
  Report Type: 
  Country: CZ (occurrence: CZ)
  Receive Date: 20121108
  Receipt Date: 20121108
  Transmission Date: 20130627
  Serious: Yes (Other)
  Sender: FDA-Public Use
  Company Number: PHHY2012CZ102271

PATIENT
  Age: 35 Year
  Sex: Male

DRUGS (3)
  1. AMOXICILLIN [Suspect]
     Indication: NASOPHARYNGITIS
     Dosage: 1000 mg, Q12H
     Route: 048
  2. AMOXICILLIN [Suspect]
     Indication: TONSILLAR INFLAMMATION
  3. MODAFEN [Concomitant]

REACTIONS (4)
  - Motor dysfunction [Recovered/Resolved]
  - Muscle spasms [Recovered/Resolved]
  - Facial spasm [Unknown]
  - Vertigo [Recovered/Resolved]
